FAERS Safety Report 25494548 (Version 1)
Quarter: 2025Q2

REPORT INFORMATION
  Report Type: Spontaneous
  Country: DK (occurrence: DK)
  Receive Date: 20250630
  Receipt Date: 20250630
  Transmission Date: 20250716
  Serious: Yes (Death, Congenital Anomaly)
  Sender: AMGEN
  Company Number: None

PATIENT

DRUGS (2)
  1. ADALIMUMAB [Suspect]
     Active Substance: ADALIMUMAB
     Indication: Foetal exposure during pregnancy
     Route: 064
  2. VABYSMO [Concomitant]
     Active Substance: FARICIMAB-SVOA
     Indication: Antiangiogenic therapy
     Route: 064

REACTIONS (2)
  - Trisomy 16 [Fatal]
  - Foetal exposure during pregnancy [Recovered/Resolved]

NARRATIVE: CASE EVENT DATE: 20250101
